FAERS Safety Report 23787864 (Version 1)
Quarter: 2024Q2

REPORT INFORMATION
  Report Type: Spontaneous
  Country: US (occurrence: None)
  Receive Date: 20240425
  Receipt Date: 20240425
  Transmission Date: 20240716
  Serious: No
  Sender: FDA-Public Use
  Company Number: None

PATIENT
  Age: 88 Year
  Sex: Female
  Weight: 53.98 kg

DRUGS (3)
  1. FORTEO [Suspect]
     Active Substance: TERIPARATIDE
     Indication: Senile osteoporosis
     Dosage: OTHER STRENGTH : 600/2.4 MG/ML;?FREQUENCY : DAILY;?
     Route: 058
  2. FORTEO [Suspect]
     Active Substance: TERIPARATIDE
     Indication: Osteoporosis
  3. FORTEO [Suspect]
     Active Substance: TERIPARATIDE
     Indication: Pathological fracture

REACTIONS (1)
  - Illness [None]
